FAERS Safety Report 4512389-3 (Version None)
Quarter: 2004Q4

REPORT INFORMATION
  Report Type: 
  Country: None (occurrence: None)
  Receive Date: 20041123
  Receipt Date: 20041108
  Transmission Date: 20050328
  Serious: Yes (Hospitalization)
  Sender: FDA-Public Use
  Company Number: S04-CAN-07677-01

PATIENT
  Age: 83 Year
  Sex: Female

DRUGS (9)
  1. EBIXA (MEMANTINE) [Suspect]
     Indication: DEMENTIA ALZHEIMER'S TYPE
     Dosage: 10 MG BID PO
     Route: 048
     Dates: start: 20041001
  2. EBIXA (MEMANTINE) [Suspect]
     Indication: DEMENTIA ALZHEIMER'S TYPE
     Dosage: 10 MG QD PO
     Route: 048
     Dates: start: 20040901, end: 20041001
  3. ARICEPT [Concomitant]
  4. LEVOTHYROXINE SODIUM [Concomitant]
  5. PLAVIX [Concomitant]
  6. FAMOTIDINE [Concomitant]
  7. FOSAMAX [Concomitant]
  8. VITAMIN E [Concomitant]
  9. CALCIUM (CALCIUM) [Concomitant]

REACTIONS (4)
  - BLOOD PRESSURE INCREASED [None]
  - CONVULSION [None]
  - LOSS OF CONSCIOUSNESS [None]
  - TRANSIENT ISCHAEMIC ATTACK [None]
